FAERS Safety Report 7003638-0 (Version None)
Quarter: 2010Q3

REPORT INFORMATION
  Report Type: 
  Country: None (occurrence: None)
  Receive Date: 20100920
  Receipt Date: 20090518
  Transmission Date: 20110219
  Serious: No
  Sender: FDA-Public Use
  Company Number: US-WYE-H09397709

PATIENT
  Sex: Female

DRUGS (4)
  1. PROTONIX [Suspect]
     Indication: GASTROOESOPHAGEAL REFLUX DISEASE
     Route: 048
     Dates: start: 20080101
  2. PROTONIX [Suspect]
     Indication: DIVERTICULUM
  3. VITAMIN B [Concomitant]
  4. ZOLOFT [Concomitant]

REACTIONS (1)
  - MEDICATION RESIDUE [None]
